FAERS Safety Report 5523341-3 (Version None)
Quarter: 2007Q4

REPORT INFORMATION
  Report Type: 
  Country: None (occurrence: None)
  Receive Date: 20071121
  Receipt Date: 20071120
  Transmission Date: 20080405
  Serious: Yes (Other)
  Sender: FDA-Public Use
  Company Number: B0359434A

PATIENT
  Sex: Male

DRUGS (2)
  1. SEROXAT [Suspect]
     Route: 065
     Dates: start: 19970601
  2. DIAZEPAM [Concomitant]

REACTIONS (9)
  - DIZZINESS [None]
  - HEADACHE [None]
  - HYPERHIDROSIS [None]
  - NIGHTMARE [None]
  - PANIC ATTACK [None]
  - PARAESTHESIA [None]
  - POOR QUALITY SLEEP [None]
  - SUICIDAL BEHAVIOUR [None]
  - WITHDRAWAL SYNDROME [None]
